FAERS Safety Report 21281142 (Version 2)
Quarter: 2022Q3

REPORT INFORMATION
  Report Type: Spontaneous
  Country: ES (occurrence: ES)
  Receive Date: 20220901
  Receipt Date: 20220915
  Transmission Date: 20221026
  Serious: Yes (Hospitalization, Other)
  Sender: FDA-Public Use
  Company Number: ES-SUN PHARMACEUTICAL INDUSTRIES LTD-2022RR-353325

PATIENT
  Age: 54 Year
  Sex: Male

DRUGS (29)
  1. TEMOZOLOMIDE [Suspect]
     Active Substance: TEMOZOLOMIDE
     Indication: Glioblastoma multiforme
     Dosage: 75 MG/M2, QD
     Route: 048
     Dates: start: 20160701, end: 20160708
  2. TEMOZOLOMIDE [Suspect]
     Active Substance: TEMOZOLOMIDE
     Dosage: 150 MG/M2, QD
     Route: 048
     Dates: start: 20160919, end: 20160924
  3. TEMOZOLOMIDE [Suspect]
     Active Substance: TEMOZOLOMIDE
     Dosage: 200 MG/M2, QD
     Route: 048
     Dates: start: 20161018
  4. METRONIDAZOLE [Concomitant]
     Active Substance: METRONIDAZOLE
     Indication: Diarrhoea
     Dosage: 250 MILLIGRAM, Q6H
     Route: 048
     Dates: start: 20161110, end: 20161116
  5. RETINOL [Concomitant]
     Active Substance: RETINOL
     Indication: Ulcerative keratitis
     Dosage: 10000 INTERNATIONAL UNIT, TID
     Route: 047
     Dates: start: 20160721
  6. ACETAMINOPHEN [Concomitant]
     Active Substance: ACETAMINOPHEN
     Indication: Analgesic therapy
     Dosage: UNK
     Route: 048
     Dates: start: 20160928
  7. HYALURONATE SODIUM\TREHALOSE [Concomitant]
     Active Substance: HYALURONATE SODIUM\TREHALOSE
     Indication: Eye lubrication therapy
     Dosage: 3 %, TID
     Route: 047
     Dates: start: 20160721
  8. AMINO ACIDS, SOURCE UNSPECIFIED [Concomitant]
     Active Substance: AMINO ACIDS, SOURCE UNSPECIFIED
     Indication: Ulcerative keratitis
     Dosage: 10000 IU, TID
     Route: 047
     Dates: start: 20160721
  9. AUGMENTIN [Concomitant]
     Active Substance: AMOXICILLIN\CLAVULANATE POTASSIUM
     Indication: Pneumonia
     Dosage: UNK
     Route: 040
     Dates: start: 20160928, end: 20160928
  10. LEVETIRACETAM [Concomitant]
     Active Substance: LEVETIRACETAM
     Indication: Disorientation
     Dosage: 500 MG, BID
     Route: 048
     Dates: start: 20160606, end: 20160825
  11. DEXAMETHASONE [Concomitant]
     Active Substance: DEXAMETHASONE
     Indication: Prophylaxis
     Dosage: 4 MILLIGRAM, QD
     Route: 048
     Dates: start: 20160826, end: 20160909
  12. DEXAMETHASONE [Concomitant]
     Active Substance: DEXAMETHASONE
     Dosage: 2 MG, TID
     Route: 048
     Dates: start: 20160606, end: 20160825
  13. DEXAMETHASONE [Concomitant]
     Active Substance: DEXAMETHASONE
     Dosage: 2 MILLIGRAM, UNK
     Route: 048
     Dates: start: 20160910, end: 20161127
  14. DEXAMETHASONE [Concomitant]
     Active Substance: DEXAMETHASONE
     Dosage: 4 MILLIGRAM, BID
     Route: 048
     Dates: start: 20161128
  15. VIGAMOX [Concomitant]
     Active Substance: MOXIFLOXACIN HYDROCHLORIDE
     Indication: Conjunctivitis
     Dosage: 5 MG/ML, BID
     Route: 047
     Dates: start: 20160721
  16. LACOSAMIDE [Concomitant]
     Active Substance: LACOSAMIDE
     Indication: Epilepsy
     Dosage: 100 MILLIGRAM, BID
     Route: 065
     Dates: start: 20160826
  17. SULFAMETHOXAZOLE\TRIMETHOPRIM [Concomitant]
     Active Substance: SULFAMETHOXAZOLE\TRIMETHOPRIM
     Indication: Lymphopenia
     Dosage: UNK
     Route: 040
     Dates: start: 20160928
  18. LORAZEPAM [Concomitant]
     Active Substance: LORAZEPAM
     Indication: Insomnia
     Dosage: 1 MILLIGRAM, QD
     Route: 048
     Dates: start: 20160928
  19. ENOXAPARIN SODIUM [Concomitant]
     Active Substance: ENOXAPARIN SODIUM
     Indication: Thrombosis prophylaxis
     Dosage: 40 MILLIGRAM, QD
     Route: 058
     Dates: start: 20160826, end: 20161110
  20. AQUORAL [GLYCEROL;SILICON DIOXIDE] [Concomitant]
     Indication: Eye lubrication therapy
     Dosage: 0.4%, QH
     Route: 047
     Dates: start: 20160721
  21. GANCICLOVIR [Concomitant]
     Active Substance: GANCICLOVIR
     Indication: Keratitis
     Dosage: 1.5 MG/G, BID
     Route: 047
     Dates: start: 20160721
  22. CHLORAMPHENICOL [Concomitant]
     Active Substance: CHLORAMPHENICOL
     Indication: Ulcerative keratitis
     Dosage: 10000 INTERNATIONAL UNIT, TID
     Route: 047
     Dates: start: 20160721
  23. CYCLOPENTOLATE HYDROCHLORIDE [Concomitant]
     Active Substance: CYCLOPENTOLATE HYDROCHLORIDE
     Indication: Mydriasis
     Dosage: TOTAL DAILY DOSE: 10 MG/ML
     Route: 047
     Dates: start: 20160721
  24. METHYLPREDNISOLONE [Concomitant]
     Active Substance: METHYLPREDNISOLONE
     Indication: Pneumonia
     Dosage: 20 MILLIGRAM, BID
     Route: 040
     Dates: start: 20160928
  25. MEROPENEM [Concomitant]
     Active Substance: MEROPENEM
     Indication: Pneumonia
     Dosage: 1 MILLIGRAM, TID
     Route: 040
     Dates: start: 20160928
  26. TINZAPARIN [Concomitant]
     Active Substance: TINZAPARIN
     Indication: Prophylaxis
     Dosage: UNK
     Route: 058
     Dates: start: 20160928
  27. VALPROIC ACID [Concomitant]
     Active Substance: VALPROIC ACID
     Indication: Epilepsy
     Dosage: 1000 MILLIGRAM, BID
     Route: 065
     Dates: start: 20160826
  28. OMEPRAZOLE [Concomitant]
     Active Substance: OMEPRAZOLE
     Indication: Gastric disorder
     Dosage: 20 MG, BID
     Route: 048
     Dates: start: 20160606
  29. IPRATROPIUM BROMIDE [Concomitant]
     Active Substance: IPRATROPIUM BROMIDE
     Indication: Pneumonia
     Dosage: 500 MILLIGRAM, TID
     Dates: start: 20160928

REACTIONS (2)
  - Abdominal sepsis [Recovered/Resolved]
  - Punctate keratitis [Unknown]

NARRATIVE: CASE EVENT DATE: 20160721
